FAERS Safety Report 5558228-3 (Version None)
Quarter: 2007Q4

REPORT INFORMATION
  Report Type: 
  Country: None (occurrence: None)
  Receive Date: 20071214
  Receipt Date: 20071203
  Transmission Date: 20080405
  Serious: Yes (Hospitalization, Other)
  Sender: FDA-Public Use
  Company Number: FR-PFIZER INC-2007082753

PATIENT
  Age: 44 Year
  Sex: Female

DRUGS (9)
  1. VFEND [Suspect]
     Indication: ASPERGILLOSIS
     Route: 048
     Dates: start: 20030201, end: 20070827
  2. METHOTREXATE [Suspect]
     Indication: RHEUMATOID ARTHRITIS
     Dosage: DAILY DOSE:15MG
     Route: 048
     Dates: start: 20020101, end: 20040401
  3. METHOTREXATE [Suspect]
     Dosage: DAILY DOSE:10MG
     Route: 048
  4. METHOTREXATE [Suspect]
     Dosage: DAILY DOSE:7.5MG
     Route: 048
  5. CORTANCYL [Suspect]
     Indication: RHEUMATOID ARTHRITIS
     Route: 048
  6. TAXOL [Concomitant]
     Dosage: DAILY DOSE:362MG
  7. TAXOL [Concomitant]
     Dosage: DAILY DOSE:375MG
  8. PARAPLATIN [Concomitant]
     Dosage: DAILY DOSE:640MG
  9. PARAPLATIN [Concomitant]
     Dosage: DAILY DOSE:710MG

REACTIONS (4)
  - PHOTODERMATOSIS [None]
  - PHOTOSENSITIVITY REACTION [None]
  - SKIN CANCER [None]
  - SQUAMOUS CELL CARCINOMA [None]
